FAERS Safety Report 24988559 (Version 3)
Quarter: 2025Q4

REPORT INFORMATION
  Report Type: Report from Study
  Country: US (occurrence: US)
  Receive Date: 20250220
  Receipt Date: 20251212
  Transmission Date: 20260118
  Serious: No
  Sender: VIIV
  Company Number: US-VIIV HEALTHCARE-US2025020521

PATIENT
  Sex: Female

DRUGS (1)
  1. DOLUTEGRAVIR SODIUM\LAMIVUDINE [Suspect]
     Active Substance: DOLUTEGRAVIR SODIUM\LAMIVUDINE
     Indication: Product used for unknown indication
     Dosage: UNK

REACTIONS (1)
  - No adverse event [Unknown]
